FAERS Safety Report 25839044 (Version 1)
Quarter: 2025Q3

REPORT INFORMATION
  Report Type: Report from Study
  Country: CN (occurrence: CN)
  Receive Date: 20250924
  Receipt Date: 20250924
  Transmission Date: 20251021
  Serious: Yes (Other)
  Sender: ROCHE
  Company Number: CN-ROCHE-10000392364

PATIENT
  Age: 62 Year
  Sex: Female
  Weight: 72 kg

DRUGS (41)
  1. RITUXIMAB [Suspect]
     Active Substance: RITUXIMAB
     Indication: Diffuse large B-cell lymphoma
     Route: 042
     Dates: start: 20250301, end: 20250301
  2. RITUXIMAB [Suspect]
     Active Substance: RITUXIMAB
     Route: 042
     Dates: start: 20250830, end: 20250830
  3. POLATUZUMAB VEDOTIN [Suspect]
     Active Substance: POLATUZUMAB VEDOTIN
     Indication: Diffuse large B-cell lymphoma
     Route: 042
     Dates: start: 20250228, end: 20250228
  4. METHOTREXATE [Suspect]
     Active Substance: METHOTREXATE
     Indication: Diffuse large B-cell lymphoma
     Route: 042
     Dates: end: 20250831
  5. Sacubitril Valsartan Sodium Tablets [Concomitant]
     Route: 048
     Dates: start: 20250221
  6. BISOPROLOL FUMARATE [Concomitant]
     Active Substance: BISOPROLOL FUMARATE
     Route: 048
     Dates: start: 20250417
  7. ATORVASTATIN CALCIUM [Concomitant]
     Active Substance: ATORVASTATIN CALCIUM
     Route: 048
     Dates: start: 20250221
  8. CLOPIDOGREL BISULFATE [Concomitant]
     Active Substance: CLOPIDOGREL BISULFATE
     Route: 048
     Dates: start: 20250221
  9. ASPIRIN [Concomitant]
     Active Substance: ASPIRIN
     Route: 048
     Dates: start: 20250221
  10. ISOSORBIDE MONONITRATE [Concomitant]
     Active Substance: ISOSORBIDE MONONITRATE
     Route: 048
     Dates: start: 20250222
  11. Trimetazidine Hydrochloride Tablets [Concomitant]
     Route: 048
     Dates: start: 20250222
  12. PRAMIPEXOLE DIHYDROCHLORIDE [Concomitant]
     Active Substance: PRAMIPEXOLE DIHYDROCHLORIDE
     Route: 048
     Dates: start: 2022
  13. Levodopa and Benserazide Hydrochloride Tablets [Concomitant]
     Route: 048
     Dates: start: 2022
  14. Alprazolam Tables [Concomitant]
     Route: 048
     Dates: start: 20250414
  15. Trazodone?Hydrochloride?Tablets [Concomitant]
     Route: 048
     Dates: start: 20250617
  16. YI QI WEI XUE PIAN [Concomitant]
     Indication: Adverse event
     Route: 048
     Dates: start: 20250620
  17. DIPHENHYDRAMINE HYDROCHLORIDE [Concomitant]
     Active Substance: DIPHENHYDRAMINE HYDROCHLORIDE
     Route: 030
     Dates: start: 20250825, end: 20250825
  18. DIPHENHYDRAMINE HYDROCHLORIDE [Concomitant]
     Active Substance: DIPHENHYDRAMINE HYDROCHLORIDE
     Route: 030
     Dates: start: 20250830, end: 20250830
  19. DEXAMETHASONE SODIUM PHOSPHATE [Concomitant]
     Active Substance: DEXAMETHASONE SODIUM PHOSPHATE
     Dates: start: 20250825, end: 20250825
  20. DEXAMETHASONE SODIUM PHOSPHATE [Concomitant]
     Active Substance: DEXAMETHASONE SODIUM PHOSPHATE
     Dates: start: 20250830, end: 20250830
  21. ALLOPURINOL [Concomitant]
     Active Substance: ALLOPURINOL
     Route: 048
     Dates: start: 20250829, end: 20250916
  22. TORSEMIDE [Concomitant]
     Active Substance: TORSEMIDE
     Indication: Polyuria
     Dates: start: 20250829
  23. TORSEMIDE [Concomitant]
     Active Substance: TORSEMIDE
     Dates: start: 20250829
  24. TORSEMIDE [Concomitant]
     Active Substance: TORSEMIDE
     Dates: start: 20250916, end: 20250916
  25. LEUCOVORIN CALCIUM [Concomitant]
     Active Substance: LEUCOVORIN CALCIUM
     Dates: start: 20250831
  26. LEUCOVORIN CALCIUM [Concomitant]
     Active Substance: LEUCOVORIN CALCIUM
  27. LEUCOVORIN CALCIUM [Concomitant]
     Active Substance: LEUCOVORIN CALCIUM
     Dates: end: 20250915
  28. LEUCOVORIN CALCIUM [Concomitant]
     Active Substance: LEUCOVORIN CALCIUM
     Route: 042
  29. LEUCOVORIN CALCIUM [Concomitant]
     Active Substance: LEUCOVORIN CALCIUM
     Route: 042
  30. LEUCOVORIN CALCIUM [Concomitant]
     Active Substance: LEUCOVORIN CALCIUM
     Route: 042
  31. Compound ?-Ketoacid Tablets [Concomitant]
     Route: 048
     Dates: end: 20250916
  32. JIN SHUI BAO PIAN [Concomitant]
     Indication: Adverse event
     Route: 048
     Dates: end: 20250916
  33. Recombinant Human Thrombopoietin Injection [Concomitant]
     Indication: Adverse event
     Route: 058
     Dates: end: 20250912
  34. RAFUTROMBOPAG OLAMINE [Concomitant]
     Active Substance: RAFUTROMBOPAG OLAMINE
     Indication: Adverse event
     Route: 048
     Dates: end: 20250916
  35. GLYCYRRHIZIN [Concomitant]
     Active Substance: GLYCYRRHIZIN
     Indication: Adverse event
     Route: 048
     Dates: end: 20250916
  36. SODIUM BICARBONATE [Concomitant]
     Active Substance: SODIUM BICARBONATE
     Indication: Alkalinuria
     Route: 042
     Dates: start: 20250829, end: 20250916
  37. Ondansetron Hydrochloride Injection [Concomitant]
     Indication: Prophylaxis
     Dates: start: 20250831, end: 20250831
  38. FOSAPREPITANT DIMEGLUMINE [Concomitant]
     Active Substance: FOSAPREPITANT DIMEGLUMINE
     Indication: Prophylaxis
     Route: 042
     Dates: start: 20250830, end: 20250830
  39. KANG FU XIN YE [Concomitant]
     Indication: Prophylaxis
     Route: 048
     Dates: start: 20250830
  40. Metoclopramide Dihydrochloride Injection [Concomitant]
     Indication: Prophylaxis
     Route: 030
  41. TORSEMIDE [Concomitant]
     Active Substance: TORSEMIDE

REACTIONS (5)
  - Blood creatinine increased [Not Recovered/Not Resolved]
  - Hypoalbuminaemia [Not Recovered/Not Resolved]
  - Blood urea increased [Recovered/Resolved]
  - Hypokalaemia [Recovered/Resolved]
  - Platelet count decreased [Recovered/Resolved]

NARRATIVE: CASE EVENT DATE: 20250901
